FAERS Safety Report 11148907 (Version 1)
Quarter: 2015Q2

REPORT INFORMATION
  Report Type: Spontaneous
  Country: US (occurrence: US)
  Receive Date: 20150529
  Receipt Date: 20150529
  Transmission Date: 20150821
  Serious: No
  Sender: FDA-Public Use
  Company Number: US-PFIZER INC-2015172525

PATIENT
  Age: 52 Year
  Sex: Female
  Weight: 54 kg

DRUGS (1)
  1. LYRICA [Suspect]
     Active Substance: PREGABALIN
     Dosage: 75 MG, 2X/DAY

REACTIONS (3)
  - Drug intolerance [Recovered/Resolved]
  - Peripheral swelling [Unknown]
  - Swelling [Unknown]
